FAERS Safety Report 10431431 (Version 1)
Quarter: 2014Q3

REPORT INFORMATION
  Report Type: Spontaneous
  Country: US (occurrence: None)
  Receive Date: 20140903
  Receipt Date: 20140903
  Transmission Date: 20150326
  Serious: Yes (Hospitalization)
  Sender: FDA-Public Use
  Company Number: 2012US000500

PATIENT
  Age: 51 Year
  Sex: Female
  Weight: 47 kg

DRUGS (19)
  1. PONATINIB (AP24534) TABLET [Suspect]
     Active Substance: PONATINIB
     Indication: CHRONIC MYELOID LEUKAEMIA
     Route: 048
     Dates: start: 20110414
  2. LORATADINE (LORATADINE) (LORATADINE) [Concomitant]
     Active Substance: LORATADINE
  3. POTASSIUM CHLORIDE (PORTASSIUM CHLORIDE) [Concomitant]
  4. VITAMIN B (VITAMIN B COMPLEX) [Concomitant]
  5. BUTALBITAL (BUTALBITAL) [Concomitant]
     Active Substance: BUTALBITAL
  6. SINGULAIR [Concomitant]
     Active Substance: MONTELUKAST SODIUM
  7. PROMETHAZINE (PROMETHAZINE HYDROCHLORIDE) [Concomitant]
  8. REQUIP [Concomitant]
     Active Substance: ROPINIROLE HYDROCHLORIDE
  9. ACYCLOVIR (ACICLOVIR SODIUM) [Concomitant]
  10. TIZANIDINE (TIZANIDINE) [Concomitant]
     Active Substance: TIZANIDINE
  11. LEVOTHYROXINE (LEVOTHYROXINE SODIUM) [Concomitant]
  12. DILAUDID [Concomitant]
     Active Substance: HYDROMORPHONE HYDROCHLORIDE
  13. DRONABINOL (DRONABINOL) [Concomitant]
  14. RANITIDINE HCL (RANITIDINE HYDROHCLORIDE) [Concomitant]
  15. VALIUM [Concomitant]
     Active Substance: DIAZEPAM
  16. ZOLOFT [Concomitant]
     Active Substance: SERTRALINE HYDROCHLORIDE
  17. VICODIN ES (HYDROCODONE BITARTRATE, PARACETAMOL) [Concomitant]
  18. ZOFRAN (ONDANSETRON HYDROCHLORIDE) [Concomitant]
  19. FLURAZEPAM (FLURAZEPAM HYDROCHLORIDE) [Concomitant]

REACTIONS (9)
  - Photophobia [None]
  - Asthenia [None]
  - Abdominal discomfort [None]
  - Bronchitis [None]
  - Headache [None]
  - Dizziness [None]
  - Gastroenteritis [None]
  - Oropharyngeal pain [None]
  - Cough [None]

NARRATIVE: CASE EVENT DATE: 20120313
